FAERS Safety Report 7737762-1 (Version None)
Quarter: 2011Q3

REPORT INFORMATION
  Report Type: 
  Country: None (occurrence: None)
  Receive Date: 20110908
  Receipt Date: 20110905
  Transmission Date: 20111222
  Serious: Yes (Life-Threatening, Hospitalization, Other)
  Sender: FDA-Public Use
  Company Number: DE-PFIZER INC-2011196997

PATIENT
  Age: 79 Year
  Sex: Male
  Weight: 112 kg

DRUGS (4)
  1. ECALTA [Suspect]
     Dosage: 100 MG, SINGLE
     Route: 042
     Dates: start: 20110804, end: 20110804
  2. SALBUHEXAL [Concomitant]
     Dosage: 1 DF, 3X/DAY
     Route: 055
  3. ECALTA [Suspect]
     Indication: CANDIDA TEST POSITIVE
     Dosage: 200 MG, SINGLE
     Route: 042
     Dates: start: 20110804, end: 20110804
  4. NOVALGIN [Concomitant]
     Dosage: 500 MG, 1X/DAY
     Route: 042

REACTIONS (18)
  - STATUS EPILEPTICUS [None]
  - MONOCYTE PERCENTAGE DECREASED [None]
  - NEUTROPHIL COUNT INCREASED [None]
  - CARDIAC ARREST [None]
  - SINUS TACHYCARDIA [None]
  - LYMPHOCYTE PERCENTAGE DECREASED [None]
  - HYPOVOLAEMIC SHOCK [None]
  - HAEMOGLOBIN DECREASED [None]
  - PAIN [None]
  - PROTHROMBIN TIME PROLONGED [None]
  - WHITE BLOOD CELL COUNT INCREASED [None]
  - ANAPHYLACTIC SHOCK [None]
  - BLOOD GLUCOSE INCREASED [None]
  - HYPOXIA [None]
  - BRADYCARDIA [None]
  - CARDIOGENIC SHOCK [None]
  - CONVULSION [None]
  - ACTIVATED PARTIAL THROMBOPLASTIN TIME PROLONGED [None]
